FAERS Safety Report 21342119 (Version 1)
Quarter: 2022Q3

REPORT INFORMATION
  Report Type: Spontaneous
  Country: US (occurrence: None)
  Receive Date: 20220915
  Receipt Date: 20220915
  Transmission Date: 20221027
  Serious: No
  Sender: FDA-Public Use
  Company Number: None

PATIENT
  Age: 89 Year
  Sex: Female
  Weight: 61.23 kg

DRUGS (1)
  1. LIBTAYO [Suspect]
     Active Substance: CEMIPLIMAB-RWLC
     Indication: Squamous cell carcinoma of skin
     Dosage: FREQUENCY : EVERY THREE WEEKS;?OTHER ROUTE : IV;?
     Route: 042
     Dates: start: 202206, end: 20220830

REACTIONS (2)
  - Skin lesion [None]
  - Blister [None]

NARRATIVE: CASE EVENT DATE: 20220830
